FAERS Safety Report 19273742 (Version 1)
Quarter: 2021Q2

REPORT INFORMATION
  Report Type: Spontaneous
  Country: US (occurrence: US)
  Receive Date: 20210519
  Receipt Date: 20210519
  Transmission Date: 20210717
  Serious: No
  Sender: FDA-Public Use
  Company Number: US-BEH-2021131735

PATIENT
  Sex: Female

DRUGS (1)
  1. HIZENTRA [Suspect]
     Active Substance: HUMAN IMMUNOGLOBULIN G
     Indication: RENAL TRANSPLANT
     Dosage: 10 GRAM, QOW
     Route: 058
     Dates: start: 20200210

REACTIONS (4)
  - Headache [Unknown]
  - Off label use [Unknown]
  - Pain [Recovered/Resolved]
  - No adverse event [Unknown]
